FAERS Safety Report 9581266 (Version 2)
Quarter: 2013Q4

REPORT INFORMATION
  Report Type: Spontaneous
  Country: US (occurrence: US)
  Receive Date: 20131002
  Receipt Date: 20131118
  Transmission Date: 20140711
  Serious: No
  Sender: FDA-Public Use
  Company Number: US-PFIZER INC-2013280915

PATIENT
  Age: 67 Year
  Sex: Male

DRUGS (4)
  1. LYRICA [Suspect]
     Indication: NEURALGIA
     Dosage: 75 MG, 3X/DAY
     Route: 048
     Dates: start: 20130920
  2. LORAZEPAM [Concomitant]
     Indication: ANXIETY
     Dosage: 0.5 MG 1-2 TABS Q 8PM
     Dates: start: 20130206
  3. COZAAR [Concomitant]
     Dosage: UNK
  4. STOOL SOFTENER [Concomitant]
     Dosage: UNK

REACTIONS (2)
  - Malaise [Unknown]
  - Activities of daily living impaired [Unknown]
